FAERS Safety Report 13925393 (Version 1)
Quarter: 2017Q3

REPORT INFORMATION
  Report Type: Report from Study
  Country: CA (occurrence: CA)
  Receive Date: 20170831
  Receipt Date: 20170831
  Transmission Date: 20171127
  Serious: Yes (Hospitalization, Other)
  Sender: FDA-Public Use
  Company Number: CA-JNJFOC-20170822553

PATIENT
  Age: 54 Year
  Sex: Male
  Weight: 70.31 kg

DRUGS (1)
  1. STELARA [Suspect]
     Active Substance: USTEKINUMAB
     Indication: CROHN^S DISEASE
     Dosage: STRENGTH = 90 MG
     Route: 058

REACTIONS (4)
  - Seizure [Recovered/Resolved]
  - General physical health deterioration [Unknown]
  - Anal fistula [Unknown]
  - Diarrhoea [Unknown]

NARRATIVE: CASE EVENT DATE: 201708
